FAERS Safety Report 6310762-4 (Version None)
Quarter: 2009Q3

REPORT INFORMATION
  Report Type: 
  Country: None (occurrence: None)
  Receive Date: 20090811
  Receipt Date: 20090731
  Transmission Date: 20100115
  Serious: Yes (Disabling)
  Sender: FDA-Public Use
  Company Number: GXKR2009DK08818

PATIENT
  Age: 77 Year
  Sex: Female

DRUGS (2)
  1. RIFAMPICIN [Suspect]
     Indication: MYCOBACTERIUM AVIUM COMPLEX INFECTION
     Dosage: 600 MG, QD, ORAL
     Route: 048
     Dates: start: 20081111, end: 20090602
  2. CLARITHROMYCIN [Concomitant]

REACTIONS (1)
  - OPTIC NEURITIS [None]
